FAERS Safety Report 21502152 (Version 1)
Quarter: 2022Q4

REPORT INFORMATION
  Report Type: Spontaneous
  Country: US (occurrence: US)
  Receive Date: 20221025
  Receipt Date: 20221025
  Transmission Date: 20230112
  Serious: Yes (Hospitalization, Other)
  Sender: FDA-Public Use
  Company Number: US-FreseniusKabi-FK202214219

PATIENT
  Age: 60 Year
  Sex: Female

DRUGS (4)
  1. AMIODARONE HYDROCHLORIDE [Suspect]
     Active Substance: AMIODARONE HYDROCHLORIDE
     Indication: Supraventricular tachycardia
     Dosage: BOLUS
     Route: 040
  2. AMIODARONE HYDROCHLORIDE [Suspect]
     Active Substance: AMIODARONE HYDROCHLORIDE
  3. AMIODARONE HYDROCHLORIDE [Suspect]
     Active Substance: AMIODARONE HYDROCHLORIDE
     Dosage: FOR 6 HOURS
  4. ADENOSINE [Concomitant]
     Active Substance: ADENOSINE
     Indication: Supraventricular tachycardia

REACTIONS (2)
  - Acute hepatic failure [Not Recovered/Not Resolved]
  - Drug-induced liver injury [Not Recovered/Not Resolved]
